FAERS Safety Report 25331678 (Version 2)
Quarter: 2025Q2

REPORT INFORMATION
  Report Type: Report from Study
  Country: PT (occurrence: PT)
  Receive Date: 20250519
  Receipt Date: 20250521
  Transmission Date: 20250717
  Serious: Yes (Other)
  Sender: SANDOZ
  Company Number: PT-SANDOZ-SDZ2025PT030979

PATIENT
  Age: 54 Year
  Sex: Male

DRUGS (1)
  1. HYRIMOZ [Suspect]
     Active Substance: ADALIMUMAB-ADAZ
     Indication: Axial spondyloarthritis
     Dosage: 40 MG, Q2W
     Route: 058
     Dates: start: 20250428

REACTIONS (5)
  - Haematochezia [Recovered/Resolved]
  - Abdominal discomfort [Recovering/Resolving]
  - Gastrointestinal pain [Recovered/Resolved]
  - Throat irritation [Not Recovered/Not Resolved]
  - Inappropriate schedule of product administration [Unknown]

NARRATIVE: CASE EVENT DATE: 20250501
